FAERS Safety Report 4556421-X (Version None)
Quarter: 2005Q1

REPORT INFORMATION
  Report Type: 
  Country: None (occurrence: None)
  Receive Date: 20050114
  Receipt Date: 20050105
  Transmission Date: 20050727
  Serious: Yes (Hospitalization)
  Sender: FDA-Public Use
  Company Number: 2005004461

PATIENT
  Age: 67 Year
  Sex: Female

DRUGS (4)
  1. CELEBREX [Suspect]
     Indication: OSTEOARTHRITIS
     Dosage: 200 MG (200 MG, 1 IN 1 D), ORAL
     Route: 048
     Dates: end: 20041201
  2. SIMVASTATIN [Concomitant]
  3. DIOSMIN (DIOSMIN) [Concomitant]
  4. OMEPRAZOLE [Concomitant]

REACTIONS (1)
  - SYNCOPE [None]
